FAERS Safety Report 8831232 (Version 1)
Quarter: 2012Q4

REPORT INFORMATION
  Report Type: Spontaneous
  Country: US (occurrence: None)
  Receive Date: 20121005
  Receipt Date: 20121005
  Transmission Date: 20130627
  Serious: Yes (Hospitalization)
  Sender: FDA-Public Use
  Company Number: None

PATIENT
  Age: 21 Year
  Sex: Female
  Weight: 69.85 kg

DRUGS (1)
  1. IMPLANON [Suspect]

REACTIONS (2)
  - Arthritis bacterial [None]
  - Vaginitis bacterial [None]
